FAERS Safety Report 5328023-9 (Version None)
Quarter: 2007Q2

REPORT INFORMATION
  Report Type: 
  Country: None (occurrence: None)
  Receive Date: 20070517
  Receipt Date: 20070507
  Transmission Date: 20071010
  Serious: Yes (Hospitalization)
  Sender: FDA-Public Use
  Company Number: FR-PFIZER INC-2007038345

PATIENT
  Age: 40 Year
  Sex: Female

DRUGS (5)
  1. CEFPODOXIME PROXETIL TABLET [Suspect]
     Indication: RHINITIS
     Dosage: DAILY DOSE:200MG
     Route: 048
     Dates: start: 20070218, end: 20070309
  2. NEULEPTIL [Suspect]
     Indication: DYSTHYMIC DISORDER
     Dosage: DAILY DOSE:50MG
     Route: 048
  3. FENOFIBRATE [Suspect]
     Indication: HYPERCHOLESTEROLAEMIA
     Dosage: DAILY DOSE:400MG
     Route: 048
  4. LEPTICUR [Concomitant]
     Route: 048
  5. ATARAX [Concomitant]
     Route: 048
     Dates: start: 20070221, end: 20070303

REACTIONS (5)
  - HEPATITIS [None]
  - MYALGIA [None]
  - RASH [None]
  - RHABDOMYOLYSIS [None]
  - VISUAL DISTURBANCE [None]
